FAERS Safety Report 10560652 (Version 2)
Quarter: 2014Q4

REPORT INFORMATION
  Report Type: Spontaneous
  Country: IT (occurrence: IT)
  Receive Date: 20141103
  Receipt Date: 20141201
  Transmission Date: 20150529
  Serious: Yes (Hospitalization)
  Sender: FDA-Public Use
  Company Number: IT-009507513-1410ITA014893

PATIENT
  Age: 69 Year
  Sex: Male

DRUGS (3)
  1. REBETOL [Suspect]
     Active Substance: RIBAVIRIN
     Dosage: 1000 MG/KG, QD
     Route: 048
     Dates: start: 20140427, end: 20140503
  2. PEGASYS [Suspect]
     Active Substance: PEGINTERFERON ALFA-2A
     Dosage: 180 MICROGRAM, INJECTABLE SOLUTION, ONCE WEEKLY
     Route: 058
     Dates: start: 20140426, end: 20140426
  3. TELAPREVIR [Suspect]
     Active Substance: TELAPREVIR
     Dosage: 2250MG/KG DAILY
     Route: 048
     Dates: start: 20140428, end: 20140503

REACTIONS (1)
  - Dermatitis [Unknown]

NARRATIVE: CASE EVENT DATE: 20140503
